FAERS Safety Report 9310261 (Version 1)
Quarter: 2013Q2

REPORT INFORMATION
  Report Type: Report from Study
  Country: MX (occurrence: MX)
  Receive Date: 20130527
  Receipt Date: 20130527
  Transmission Date: 20140414
  Serious: Yes (Other)
  Sender: FDA-Public Use
  Company Number: PHHY2013MX052458

PATIENT
  Age: 78 Year
  Sex: Female

DRUGS (7)
  1. ACLASTA [Suspect]
     Indication: OSTEOPOROSIS
     Dosage: 5MG/100ML ANNUALLY
     Route: 042
     Dates: start: 2009
  2. ACLASTA [Suspect]
     Dosage: 5MG/100ML ANNUALLY
     Route: 042
  3. ACLASTA [Suspect]
     Dosage: 5MG/100ML ANNUALLY
     Route: 042
  4. ACLASTA [Suspect]
     Dosage: 5MG/100ML ANNUALLY
     Route: 042
  5. LOSARTAN [Concomitant]
     Dosage: 2 UKN, DAILY
     Dates: start: 2007
  6. B COMPLEX [Concomitant]
     Dosage: 1 UKN, DAILY
     Dates: start: 2003
  7. ASPIRIN PROTECT [Concomitant]
     Dosage: 1 UKN, DAILY (IN THE NIGHTS)

REACTIONS (2)
  - Vasodilatation [Recovered/Resolved]
  - Fall [Recovered/Resolved]
